FAERS Safety Report 16319903 (Version 2)
Quarter: 2019Q3

REPORT INFORMATION
  Report Type: Report from Study
  Country: JP (occurrence: JP)
  Receive Date: 20190516
  Receipt Date: 20190702
  Transmission Date: 20191004
  Serious: Yes (Death)
  Sender: FDA-Public Use
  Company Number: JP-ACTELION-A-CH2018-184206

PATIENT
  Age: 63 Year
  Sex: Female

DRUGS (19)
  1. FEBURIC [Concomitant]
     Active Substance: FEBUXOSTAT
  2. SAMSCA [Concomitant]
     Active Substance: TOLVAPTAN
  3. TRAZENTA [Concomitant]
     Active Substance: LINAGLIPTIN
  4. EVOXAC [Concomitant]
     Active Substance: CEVIMELINE HYDROCHLORIDE
  5. TRACLEER [Suspect]
     Active Substance: BOSENTAN
     Indication: SCLERODERMA ASSOCIATED DIGITAL ULCER
     Dosage: 62.5 MG, QD
     Route: 048
     Dates: start: 20180306, end: 20180411
  6. NEXIUM [Concomitant]
     Active Substance: ESOMEPRAZOLE MAGNESIUM
  7. AMINOVACT [Concomitant]
     Active Substance: ISOLEUCINE\LEUCINE\VALINE
  8. PIARLE [Concomitant]
     Active Substance: LACTULOSE
  9. BERAPROST NA [Concomitant]
     Active Substance: BERAPROST SODIUM
  10. CP [Concomitant]
  11. AMINOLEBAN [Concomitant]
     Active Substance: AMINO ACIDS
  12. TALION [Concomitant]
  13. DIQUAS [Concomitant]
     Active Substance: DIQUAFOSOL TETRASODIUM
  14. SPIRONOLACTONE. [Concomitant]
     Active Substance: SPIRONOLACTONE
  15. BELSOMRA [Concomitant]
     Active Substance: SUVOREXANT
  16. FERROUS CITRATE NA [Concomitant]
     Active Substance: SODIUM FERROUS CITRATE
  17. FLUITRAN [Concomitant]
     Active Substance: TRICHLORMETHIAZIDE
  18. RISPERIDONE. [Concomitant]
     Active Substance: RISPERIDONE
  19. FUROSEMIDE. [Concomitant]
     Active Substance: FUROSEMIDE

REACTIONS (4)
  - Blood urea increased [Fatal]
  - Concomitant disease aggravated [Fatal]
  - Primary biliary cholangitis [Fatal]
  - Hepatic failure [Fatal]

NARRATIVE: CASE EVENT DATE: 20180411
